FAERS Safety Report 16410600 (Version 1)
Quarter: 2019Q2

REPORT INFORMATION
  Report Type: Spontaneous
  Country: US (occurrence: US)
  Receive Date: 20190610
  Receipt Date: 20190610
  Transmission Date: 20190711
  Serious: Yes (Disabling, Other)
  Sender: FDA-Public Use
  Company Number: US-SA-2019SA155703

PATIENT
  Sex: Male

DRUGS (1)
  1. GOLD BOND MEDICATED CRACKED SKIN FILL AND PROTECT [Suspect]
     Active Substance: PETROLATUM

REACTIONS (3)
  - Deformity [Unknown]
  - Mesothelioma [Unknown]
  - Asbestosis [Unknown]
